FAERS Safety Report 5986248-3 (Version None)
Quarter: 2008Q4

REPORT INFORMATION
  Report Type: 
  Country: None (occurrence: None)
  Receive Date: 20081209
  Receipt Date: 20081128
  Transmission Date: 20090506
  Serious: Yes (Hospitalization)
  Sender: FDA-Public Use
  Company Number: FR-AVENTIS-200814216FR

PATIENT
  Age: 81 Year
  Sex: Female

DRUGS (13)
  1. DI-ANTALVIC                        /00220901/ [Suspect]
     Indication: PAIN
     Route: 048
     Dates: end: 20080613
  2. LASIX [Suspect]
     Route: 048
     Dates: end: 20080613
  3. CALCIPARINE [Suspect]
     Indication: PROPHYLAXIS
     Route: 058
     Dates: start: 20080614, end: 20080619
  4. ENDOTELON                          /00811401/ [Suspect]
     Indication: VENOUS INSUFFICIENCY
     Route: 048
     Dates: end: 20080613
  5. AUGMENTIN '125' [Suspect]
     Indication: ERYSIPELAS
     Route: 048
     Dates: start: 20080613, end: 20080619
  6. TOBREX [Suspect]
     Indication: DRUG USE FOR UNKNOWN INDICATION
     Route: 047
     Dates: start: 20080613, end: 20080618
  7. DIFFU K [Suspect]
     Route: 048
     Dates: start: 20080613, end: 20080618
  8. ZOCOR [Suspect]
     Route: 048
     Dates: end: 20080613
  9. LERCAN [Suspect]
     Route: 048
     Dates: end: 20080613
  10. TRANDATE [Suspect]
     Route: 048
     Dates: end: 20080613
  11. HYZAAR [Suspect]
     Route: 048
     Dates: end: 20080613
  12. BRICANYL [Concomitant]
     Indication: DRUG USE FOR UNKNOWN INDICATION
     Route: 002
     Dates: start: 20080613
  13. ATROVENT [Concomitant]
     Indication: DRUG USE FOR UNKNOWN INDICATION
     Route: 002

REACTIONS (2)
  - ACUTE GENERALISED EXANTHEMATOUS PUSTULOSIS [None]
  - TOXIC SKIN ERUPTION [None]
